FAERS Safety Report 24073908 (Version 2)
Quarter: 2024Q3

REPORT INFORMATION
  Report Type: Spontaneous
  Country: US (occurrence: US)
  Receive Date: 20240710
  Receipt Date: 20240812
  Transmission Date: 20241016
  Serious: No
  Sender: PFIZER
  Company Number: US-PFIZER INC-PV202400089307

PATIENT
  Age: 12 Year
  Sex: Male
  Weight: 43 kg

DRUGS (4)
  1. GENOTROPIN [Suspect]
     Active Substance: SOMATROPIN
     Indication: Growth hormone deficiency
     Dosage: 1.4 MG/DAY 6 DAYS/WEEK (DOSE IN INCREMENTS OF 0.2 MG)
  2. GENOTROPIN [Suspect]
     Active Substance: SOMATROPIN
     Indication: Hypopituitarism
  3. GENOTROPIN [Suspect]
     Active Substance: SOMATROPIN
     Indication: Short stature
  4. NORDITROPIN [Concomitant]
     Active Substance: SOMATROPIN
     Dosage: 1.4 MG 6 DAYS A WEEK (0.20MG/KG/WK)

REACTIONS (3)
  - Insulin-like growth factor increased [Unknown]
  - Alanine aminotransferase increased [Unknown]
  - Bone density increased [Unknown]
